FAERS Safety Report 4595752-4 (Version None)
Quarter: 2005Q1

REPORT INFORMATION
  Report Type: 
  Country: None (occurrence: None)
  Receive Date: 20050224
  Receipt Date: 20050214
  Transmission Date: 20050727
  Serious: No
  Sender: FDA-Public Use
  Company Number: RS004901-J

PATIENT
  Age: 80 Year
  Sex: Male

DRUGS (3)
  1. PARIET (RABEPRAZOLE) (RABEPRAZOLE SODIUM) [Suspect]
     Indication: GASTRIC ULCER
     Dosage: 20 MG 2 IN 1 D ORAL
     Route: 048
     Dates: start: 20041222, end: 20041227
  2. MAGNESIUM OXIDE (MAGNESIUM OXIDE) [Concomitant]
  3. BERIZYM (BERIZYM) [Concomitant]

REACTIONS (2)
  - HAEMODIALYSIS [None]
  - RENAL IMPAIRMENT [None]
